FAERS Safety Report 5361640-9 (Version None)
Quarter: 2007Q2

REPORT INFORMATION
  Report Type: 
  Country: None (occurrence: None)
  Receive Date: 20070615
  Receipt Date: 20070615
  Transmission Date: 20071010
  Serious: No
  Sender: FDA-Public Use
  Company Number: None

PATIENT
  Age: 64 Year
  Sex: Male

DRUGS (1)
  1. METOPROLOL SUCCINATE [Suspect]
     Indication: HYPERTENSION
     Dosage: 5MG ONCE IV
     Route: 042
     Dates: start: 20050323, end: 20070314

REACTIONS (3)
  - BRONCHOSPASM [None]
  - COUGH [None]
  - WHEEZING [None]
